FAERS Safety Report 18030010 (Version 1)
Quarter: 2020Q3

REPORT INFORMATION
  Report Type: Spontaneous
  Country: US (occurrence: US)
  Receive Date: 20200715
  Receipt Date: 20200715
  Transmission Date: 20201103
  Serious: Yes (Hospitalization)
  Sender: FDA-Public Use
  Company Number: None

PATIENT
  Sex: Female

DRUGS (13)
  1. CEFDINIR. [Concomitant]
     Active Substance: CEFDINIR
  2. ELIQUIS [Concomitant]
     Active Substance: APIXABAN
  3. ESBRIET [Suspect]
     Active Substance: PIRFENIDONE
     Indication: IDIOPATHIC PULMONARY FIBROSIS
     Route: 048
     Dates: start: 20190328
  4. ASPIRIN. [Concomitant]
     Active Substance: ASPIRIN
  5. BREO ELLIPTA [Concomitant]
     Active Substance: FLUTICASONE FUROATE\VILANTEROL TRIFENATATE
  6. PROAIR HFA [Concomitant]
     Active Substance: ALBUTEROL SULFATE
  7. DILTIAZEM. [Suspect]
     Active Substance: DILTIAZEM
  8. DOXYCYCL HYC [Concomitant]
  9. TRIAMCINOLON CRE [Concomitant]
  10. PREDNISONE. [Concomitant]
     Active Substance: PREDNISONE
  11. CEFUROXIME. [Concomitant]
     Active Substance: CEFUROXIME
  12. HYDROXYZ PAM [Concomitant]
     Active Substance: HYDROXYZINE PAMOATE
  13. LOVASTATIN. [Concomitant]
     Active Substance: LOVASTATIN

REACTIONS (4)
  - Unevaluable event [None]
  - Cough [None]
  - Vomiting [None]
  - Blood pressure increased [None]
